FAERS Safety Report 15640791 (Version 2)
Quarter: 2018Q4

REPORT INFORMATION
  Report Type: Spontaneous
  Country: US (occurrence: US)
  Receive Date: 20181120
  Receipt Date: 20181128
  Transmission Date: 20190205
  Serious: No
  Sender: FDA-Public Use
  Company Number: US-PFIZER INC-2018469590

PATIENT
  Age: 68 Year
  Sex: Female
  Weight: 87.98 kg

DRUGS (1)
  1. CELEBREX [Suspect]
     Active Substance: CELECOXIB
     Indication: PAIN
     Dosage: UNK
     Route: 048
     Dates: start: 201810

REACTIONS (6)
  - Inflammation [Unknown]
  - Anxiety [Unknown]
  - Back pain [Unknown]
  - Swelling [Unknown]
  - Renal disorder [Unknown]
  - Dyspnoea [Unknown]

NARRATIVE: CASE EVENT DATE: 2018
